FAERS Safety Report 4806840-9 (Version None)
Quarter: 2005Q4

REPORT INFORMATION
  Report Type: 
  Country: None (occurrence: None)
  Receive Date: 20051024
  Receipt Date: 20051017
  Transmission Date: 20060501
  Serious: Yes (Death)
  Sender: FDA-Public Use
  Company Number: GB-BOEHRINGER INGELHEIM PHARMACEUTICALS, INC.-2005-UK-02071UK

PATIENT
  Age: 89 Year
  Sex: Female

DRUGS (10)
  1. TIOTROPIUM (00015/0190/A) [Suspect]
  2. OXYGEN [Suspect]
     Dosage: 1360 LITRES 2 CYLINDER
  3. LACTULOSE [Suspect]
     Dosage: 3.35G/5ML 300ML TWICE DAILY
  4. CODEINE PHOSPHATE AND ACETAMINOPHEN [Suspect]
     Dosage: 30/500, 2 PRN QDS
  5. CO-AMILOFRUSE [Suspect]
     Dosage: 5/40
  6. CALCICHEW D3 FORTE [Suspect]
  7. SALBUTAMOL CFC FREE [Suspect]
     Dosage: 100MCG/PUFF
  8. SERETIDE [Suspect]
     Dosage: 2 PUFFS TWICE DAILY
  9. ACTIVA BELOW KNEE STOCKING [Suspect]
  10. AEROCHAMBER [Suspect]

REACTIONS (1)
  - EMPHYSEMA [None]
